FAERS Safety Report 14871755 (Version 1)
Quarter: 2018Q2

REPORT INFORMATION
  Report Type: Report from Study
  Country: US (occurrence: US)
  Receive Date: 20180509
  Receipt Date: 20180509
  Transmission Date: 20180711
  Serious: Yes (Other)
  Sender: FDA-Public Use
  Company Number: US-JNJFOC-20180507627

PATIENT
  Age: 73 Year
  Sex: Female

DRUGS (7)
  1. IMBRUVICA [Suspect]
     Active Substance: IBRUTINIB
     Indication: CHRONIC LYMPHOCYTIC LEUKAEMIA
     Route: 048
     Dates: start: 20151229
  2. METFORMIN [Concomitant]
     Active Substance: METFORMIN HYDROCHLORIDE
  3. METOPROLOL. [Concomitant]
     Active Substance: METOPROLOL
  4. XANAX [Concomitant]
     Active Substance: ALPRAZOLAM
  5. IMBRUVICA [Suspect]
     Active Substance: IBRUTINIB
     Indication: CHRONIC LYMPHOCYTIC LEUKAEMIA
     Route: 048
  6. LETROZOLE. [Concomitant]
     Active Substance: LETROZOLE
  7. DOXYCYCLINE. [Concomitant]
     Active Substance: DOXYCYCLINE

REACTIONS (4)
  - Incorrect dose administered [Unknown]
  - Sinus disorder [Unknown]
  - Off label use [Unknown]
  - Epistaxis [Unknown]

NARRATIVE: CASE EVENT DATE: 20151229
